FAERS Safety Report 6529692 (Version 3)
Quarter: 2015Q4

REPORT INFORMATION
  Report Type: Spontaneous
  Country: US (occurrence: US)
  Receive Date: 20060329
  Receipt Date: 20151117
  Transmission Date: 20160305
  Serious: Yes (Hospitalization, Other)
  Sender: FDA-Public Use
  Company Number: US-PFIZER INC-2006039907

PATIENT
  Age: 37 Year
  Sex: Male

DRUGS (3)
  1. CELEBREX [Suspect]
     Active Substance: CELECOXIB
     Indication: PAIN
     Dosage: UNK, 1X/DAY (2 OR 3 TIMES)
  2. BEXTRA [Suspect]
     Active Substance: VALDECOXIB
     Indication: PAIN
     Dosage: UNK, 1X/DAY (10-20 MG, 2 OR 3 TIMES)
  3. VIOXX [Suspect]
     Active Substance: ROFECOXIB
     Indication: ILL-DEFINED DISORDER
     Dosage: UNK

REACTIONS (6)
  - Headache [Unknown]
  - Myocardial infarction [Unknown]
  - Cerebrovascular accident [Unknown]
  - Sinus bradycardia [Unknown]
  - Arrhythmia [Unknown]
  - Eye disorder [Unknown]

NARRATIVE: CASE EVENT DATE: 2004
